FAERS Safety Report 4570670-6 (Version None)
Quarter: 2005Q1

REPORT INFORMATION
  Report Type: 
  Country: None (occurrence: None)
  Receive Date: 20050204
  Receipt Date: 20050127
  Transmission Date: 20050727
  Serious: Yes (Hospitalization)
  Sender: FDA-Public Use
  Company Number: FR-BRISTOL-MYERS SQUIBB COMPANY-12840690

PATIENT
  Age: 73 Year
  Sex: Male

DRUGS (5)
  1. ELISOR TABS [Suspect]
     Route: 048
  2. HEPARIN SODIUM [Suspect]
     Route: 042
     Dates: end: 20041021
  3. ACUPAN [Suspect]
     Route: 042
  4. ACTRAPID [Suspect]
     Route: 058
  5. TRIATEC [Suspect]
     Route: 048
     Dates: start: 20041021

REACTIONS (2)
  - THROMBOCYTOPENIA [None]
  - THROMBOPHLEBITIS [None]
